FAERS Safety Report 25108739 (Version 2)
Quarter: 2025Q1

REPORT INFORMATION
  Report Type: Report from Study
  Country: CA (occurrence: CA)
  Receive Date: 20250322
  Receipt Date: 20250328
  Transmission Date: 20250408
  Serious: Yes (Other)
  Sender: CELLTRION
  Company Number: CA-CELLTRION INC.-2025CA007692

PATIENT

DRUGS (3)
  1. ADALIMUMAB-AATY [Suspect]
     Active Substance: ADALIMUMAB-AATY
     Indication: Hidradenitis
     Dosage: 40 MG,WEEKLY
     Route: 058
     Dates: end: 20240718
  2. ADALIMUMAB-AATY [Suspect]
     Active Substance: ADALIMUMAB-AATY
     Dosage: ONE INJECTION 80ML EVERY THURSDAY
     Dates: end: 20240718
  3. ADALIMUMAB-AATY [Suspect]
     Active Substance: ADALIMUMAB-AATY
     Dosage: 80 MG WEEKLY
     Route: 058

REACTIONS (6)
  - Muscle haemorrhage [Unknown]
  - Injection site haemorrhage [Unknown]
  - Injection site pain [Unknown]
  - Muscle spasms [Unknown]
  - Rash [Unknown]
  - Drug ineffective [Unknown]
